FAERS Safety Report 17196068 (Version 1)
Quarter: 2019Q4

REPORT INFORMATION
  Report Type: Spontaneous
  Country: US (occurrence: US)
  Receive Date: 20191224
  Receipt Date: 20191224
  Transmission Date: 20200122
  Serious: Yes (Other)
  Sender: FDA-Public Use
  Company Number: US-SHIRE-US201944499

PATIENT
  Sex: Female

DRUGS (1)
  1. GATTEX [Suspect]
     Active Substance: TEDUGLUTIDE\WATER
     Indication: PRODUCT USED FOR UNKNOWN INDICATION
     Dosage: 0.1550 UNIT UNKNOWN
     Route: 058
     Dates: start: 20190729, end: 20191204

REACTIONS (3)
  - Dyspepsia [Unknown]
  - Fatigue [Unknown]
  - Arterial occlusive disease [Unknown]
